FAERS Safety Report 10783074 (Version 1)
Quarter: 2015Q1

REPORT INFORMATION
  Report Type: Spontaneous
  Country: IN (occurrence: IN)
  Receive Date: 20150210
  Receipt Date: 20150210
  Transmission Date: 20150721
  Serious: Yes (Death, Hospitalization)
  Sender: FDA-Public Use
  Company Number: PHHY2015IN013581

PATIENT
  Age: 46 Year
  Sex: Female

DRUGS (4)
  1. 5 FLUORO URACIL [Concomitant]
     Active Substance: FLUOROURACIL
     Indication: BREAST CANCER STAGE II
     Route: 065
  2. EPIRUBICIN [Concomitant]
     Active Substance: EPIRUBICIN
     Indication: BREAST CANCER STAGE II
     Route: 065
  3. DOCETAXEL. [Suspect]
     Active Substance: DOCETAXEL
     Indication: METASTASES TO LIVER
     Dosage: 40 MG/M2, QW
     Route: 042
  4. CYCLOPHOSPHAMIDE. [Concomitant]
     Active Substance: CYCLOPHOSPHAMIDE
     Indication: BREAST CANCER STAGE II
     Route: 065

REACTIONS (18)
  - Malaise [Fatal]
  - Encephalopathy [Unknown]
  - Dysphagia [Fatal]
  - Mucosal inflammation [Fatal]
  - Diarrhoea [Fatal]
  - Heart rate increased [Fatal]
  - Depressed level of consciousness [Unknown]
  - Toxic epidermal necrolysis [Fatal]
  - Excoriation [Fatal]
  - Blister rupture [Fatal]
  - Oral mucosal eruption [Fatal]
  - Hypernatraemia [Fatal]
  - Pigmentation disorder [Fatal]
  - Vomiting [Fatal]
  - Pyrexia [Fatal]
  - Blood pressure decreased [Fatal]
  - Skin exfoliation [Fatal]
  - Chills [Fatal]
